FAERS Safety Report 24154840 (Version 1)
Quarter: 2024Q3

REPORT INFORMATION
  Report Type: Spontaneous
  Country: CH (occurrence: CH)
  Receive Date: 20240731
  Receipt Date: 20240731
  Transmission Date: 20241017
  Serious: Yes (Hospitalization, Other)
  Sender: BRISTOL MYERS SQUIBB
  Company Number: None

PATIENT
  Age: 60 Year
  Sex: Female
  Weight: 48 kg

DRUGS (4)
  1. YERVOY [Interacting]
     Active Substance: IPILIMUMAB
     Indication: Lung adenocarcinoma
     Route: 040
     Dates: start: 20230108, end: 20231212
  2. OPDIVO [Interacting]
     Active Substance: NIVOLUMAB
     Indication: Lung adenocarcinoma
     Route: 040
     Dates: start: 20230108, end: 20240103
  3. CARBOPLATIN [Concomitant]
     Active Substance: CARBOPLATIN
     Indication: Lung adenocarcinoma
     Route: 040
     Dates: start: 20230108, end: 20230313
  4. PEMETREXED [Concomitant]
     Active Substance: PEMETREXED
     Indication: Lung adenocarcinoma
     Route: 040
     Dates: start: 20230108, end: 20230313

REACTIONS (5)
  - Immune-mediated lung disease [Recovering/Resolving]
  - Lymphopenia [Not Recovered/Not Resolved]
  - CD4 lymphocytes decreased [Not Recovered/Not Resolved]
  - Drug interaction [Unknown]
  - Off label use [Unknown]

NARRATIVE: CASE EVENT DATE: 20230108
